FAERS Safety Report 7939409-8 (Version None)
Quarter: 2011Q4

REPORT INFORMATION
  Report Type: 
  Country: None (occurrence: None)
  Receive Date: 20111125
  Receipt Date: 20111103
  Transmission Date: 20120403
  Serious: Yes (Death, Hospitalization, Other)
  Sender: FDA-Public Use
  Company Number: IL-ROCHE-798789

PATIENT
  Age: 52 Year
  Sex: Female

DRUGS (10)
  1. HUMIRA [Concomitant]
  2. CYCLOPHOSPHAMIDE [Concomitant]
     Route: 042
  3. SEPTRA [Concomitant]
     Route: 042
  4. REMICADE [Concomitant]
  5. MABTHERA [Suspect]
     Indication: RHEUMATOID ARTHRITIS
     Dosage: RECEIVED ONE TREATMENT
     Route: 065
  6. METHOTREXATE [Concomitant]
  7. ACTEMRA [Suspect]
     Indication: VASCULITIS
     Dosage: AS REPORTED:FORM; INFUSION. RECEIVED 2 INFUSIONS
     Route: 042
  8. PREDNISONE TAB [Concomitant]
  9. IMURAN [Concomitant]
  10. ACTEMRA [Suspect]
     Indication: RHEUMATOID ARTHRITIS

REACTIONS (9)
  - CARDIAC ARREST [None]
  - DYSPNOEA [None]
  - PULMONARY EMBOLISM [None]
  - DRUG INEFFECTIVE [None]
  - PYREXIA [None]
  - SEPSIS [None]
  - CHEST PAIN [None]
  - INFECTION [None]
  - LUNG INFECTION [None]
